FAERS Safety Report 7520700-4 (Version None)
Quarter: 2011Q2

REPORT INFORMATION
  Report Type: 
  Country: None (occurrence: None)
  Receive Date: 20110603
  Receipt Date: 20110525
  Transmission Date: 20111010
  Serious: Yes (Hospitalization, Other)
  Sender: FDA-Public Use
  Company Number: CA-BRISTOL-MYERS SQUIBB COMPANY-15612609

PATIENT
  Age: 47 Year
  Sex: Male

DRUGS (4)
  1. CHOLESTEROL MEDICATION [Concomitant]
  2. WARFARIN SODIUM [Suspect]
  3. BLOOD PRESSURE MEDICATION [Concomitant]
  4. PRAVACHOL [Suspect]
     Indication: BLOOD CHOLESTEROL

REACTIONS (5)
  - INTERNATIONAL NORMALISED RATIO FLUCTUATION [None]
  - LOSS OF CONSCIOUSNESS [None]
  - ERECTILE DYSFUNCTION [None]
  - PULMONARY EMBOLISM [None]
  - AMNESIA [None]
